FAERS Safety Report 6003594-8 (Version None)
Quarter: 2008Q4

REPORT INFORMATION
  Report Type: 
  Country: None (occurrence: None)
  Receive Date: 20081212
  Receipt Date: 20081128
  Transmission Date: 20090506
  Serious: Yes (Hospitalization)
  Sender: FDA-Public Use
  Company Number: A-CH2008-22913

PATIENT
  Age: 67 Year
  Sex: Male

DRUGS (8)
  1. TRACLEER [Suspect]
     Indication: PULMONARY HYPERTENSION
     Dosage: 125 MG, BID, ORAL : 62 MG, BID, ORAL
     Route: 048
     Dates: start: 20071203, end: 20080303
  2. TRACLEER [Suspect]
     Indication: PULMONARY HYPERTENSION
     Dosage: 125 MG, BID, ORAL : 62 MG, BID, ORAL
     Route: 048
     Dates: start: 20080304, end: 20080328
  3. PREVISCAN(FLUINDIONE) [Suspect]
  4. KARDEGIC(ACETYLSALICYLICATE LYSINE, ACETYLSALICYLIC ACID) [Suspect]
  5. RAMIPRIL [Concomitant]
  6. LASIX [Concomitant]
  7. BISOPROLOL FUMARATE [Concomitant]
  8. PRAVASTATIN [Concomitant]

REACTIONS (4)
  - GASTROENTERITIS RADIATION [None]
  - NORMOCHROMIC NORMOCYTIC ANAEMIA [None]
  - OFF LABEL USE [None]
  - RECTAL HAEMORRHAGE [None]
